FAERS Safety Report 11340364 (Version 2)
Quarter: 2015Q3

REPORT INFORMATION
  Report Type: Spontaneous
  Country: DE (occurrence: DE)
  Receive Date: 20150805
  Receipt Date: 20150831
  Transmission Date: 20151125
  Serious: Yes (Hospitalization, Other)
  Sender: FDA-Public Use
  Company Number: DE-SA-2015SA113442

PATIENT
  Age: 66 Year
  Sex: Female

DRUGS (7)
  1. AUBAGIO [Suspect]
     Active Substance: TERIFLUNOMIDE
     Indication: MULTIPLE SCLEROSIS
     Route: 048
     Dates: start: 201403, end: 201508
  2. LYRICA [Concomitant]
     Active Substance: PREGABALIN
     Indication: PAIN
     Dosage: DOSE: ^75 MG 4X/1^
     Route: 048
     Dates: start: 20141128
  3. METFORMIN [Concomitant]
     Active Substance: METFORMIN HYDROCHLORIDE
  4. MESALAZINE [Concomitant]
     Active Substance: MESALAMINE
  5. SULPIRIDE [Concomitant]
     Active Substance: SULPIRIDE
     Indication: DIZZINESS
     Dosage: DOSE: 100-50-100-50 MG DAILY
     Route: 048
     Dates: start: 20140416
  6. JANUVIA [Concomitant]
     Active Substance: SITAGLIPTIN PHOSPHATE
  7. VIGANTOLETTEN [Concomitant]
     Active Substance: CHOLECALCIFEROL
     Indication: VITAMIN D DEFICIENCY
     Dosage: DOSE: 3X1000 IU DAILY
     Route: 048
     Dates: start: 20140708

REACTIONS (7)
  - Gastrointestinal fistula [Unknown]
  - Diarrhoea [Recovering/Resolving]
  - Vitamin D deficiency [Recovering/Resolving]
  - Crohn^s disease [Not Recovered/Not Resolved]
  - Night sweats [Unknown]
  - Frequent bowel movements [Recovering/Resolving]
  - Weight decreased [Recovering/Resolving]

NARRATIVE: CASE EVENT DATE: 20150616
